FAERS Safety Report 9200308 (Version 1)
Quarter: 2013Q1

REPORT INFORMATION
  Report Type: Spontaneous
  Country: US (occurrence: US)
  Receive Date: 20130329
  Receipt Date: 20130329
  Transmission Date: 20140127
  Serious: Yes (Other)
  Sender: FDA-Public Use
  Company Number: US-OTSUKA-US-2013-10478

PATIENT
  Age: 65 Year
  Sex: Female

DRUGS (1)
  1. SAMSCA [Suspect]
     Indication: HYPONATRAEMIA
     Dosage: UNK, QD
     Dates: start: 201301, end: 201301

REACTIONS (3)
  - Myocardial infarction [Unknown]
  - Small cell lung cancer [Unknown]
  - Small cell carcinoma [Unknown]
